FAERS Safety Report 8598831-X (Version None)
Quarter: 2012Q3

REPORT INFORMATION
  Report Type: 
  Country: None (occurrence: None)
  Receive Date: 20120806
  Receipt Date: 20120806
  Transmission Date: 20120928
  Serious: Yes (Other)
  Sender: FDA-Public Use
  Company Number: None

PATIENT
  Age: 64 Year
  Sex: Female
  Weight: 52.1637 kg

DRUGS (1)
  1. PROLIA [Suspect]
     Indication: OSTEOPOROSIS
     Dates: start: 20120522, end: 20120101

REACTIONS (20)
  - MUSCULAR WEAKNESS [None]
  - PAIN [None]
  - INSOMNIA [None]
  - PRURITUS [None]
  - POLLAKIURIA [None]
  - HEART RATE INCREASED [None]
  - CHILLS [None]
  - DYSPHONIA [None]
  - NERVOUS SYSTEM DISORDER [None]
  - EAR INFECTION [None]
  - PARAESTHESIA [None]
  - HERPES ZOSTER [None]
  - MUSCULOSKELETAL PAIN [None]
  - COUGH [None]
  - FLATULENCE [None]
  - PAIN IN EXTREMITY [None]
  - ASTHENIA [None]
  - CYSTITIS [None]
  - FEELING JITTERY [None]
  - FATIGUE [None]
